FAERS Safety Report 13581464 (Version 2)
Quarter: 2017Q2

REPORT INFORMATION
  Report Type: Spontaneous
  Country: US (occurrence: US)
  Receive Date: 20170525
  Receipt Date: 20170526
  Transmission Date: 20170830
  Serious: No
  Sender: FDA-Public Use
  Company Number: US-BAYER-2017-088185

PATIENT
  Age: 82 Year
  Sex: Female
  Weight: 54 kg

DRUGS (3)
  1. MIRALAX [Suspect]
     Active Substance: POLYETHYLENE GLYCOL 3350
     Indication: INTESTINAL OBSTRUCTION
  2. MIRALAX [Suspect]
     Active Substance: POLYETHYLENE GLYCOL 3350
     Indication: GASTROINTESTINAL DISORDER
     Dosage: UNK, A QUARTER OF A CAP IN WATER
     Route: 048
     Dates: start: 201703, end: 20170508
  3. LEVOTHYROXINE. [Concomitant]
     Active Substance: LEVOTHYROXINE
     Dosage: UNK

REACTIONS (6)
  - Underdose [Unknown]
  - Product use in unapproved indication [Unknown]
  - Off label use [Unknown]
  - Discomfort [Unknown]
  - Flatulence [Not Recovered/Not Resolved]
  - Inappropriate prescribing [Unknown]

NARRATIVE: CASE EVENT DATE: 2017
